FAERS Safety Report 6122068-7 (Version None)
Quarter: 2009Q1

REPORT INFORMATION
  Report Type: 
  Country: None (occurrence: None)
  Receive Date: 20090316
  Receipt Date: 20090316
  Transmission Date: 20090719
  Serious: Yes (Hospitalization)
  Sender: FDA-Public Use
  Company Number: None

PATIENT
  Sex: Female
  Weight: 79 kg

DRUGS (3)
  1. GEMCITABINE HCL [Suspect]
     Dosage: 4368 MG
     Dates: end: 20090220
  2. CISPLATIN [Suspect]
     Dosage: 137 MG
     Dates: end: 20090213
  3. DIFLUCAN [Concomitant]

REACTIONS (7)
  - ABDOMINAL PAIN UPPER [None]
  - ALANINE AMINOTRANSFERASE INCREASED [None]
  - ASPARTATE AMINOTRANSFERASE INCREASED [None]
  - BLOOD ALKALINE PHOSPHATASE INCREASED [None]
  - CHEST PAIN [None]
  - CHOLELITHIASIS [None]
  - PYREXIA [None]
